FAERS Safety Report 21771173 (Version 1)
Quarter: 2022Q4

REPORT INFORMATION
  Report Type: Spontaneous
  Country: CN (occurrence: CN)
  Receive Date: 20221223
  Receipt Date: 20221223
  Transmission Date: 20230113
  Serious: Yes (Other)
  Sender: FDA-Public Use
  Company Number: None

PATIENT
  Age: 56 Year
  Sex: Female
  Weight: 52 kg

DRUGS (11)
  1. CYCLOPHOSPHAMIDE [Suspect]
     Active Substance: CYCLOPHOSPHAMIDE
     Indication: Neoplasm
     Dosage: 0.8 G, QD (DILUTED WITH 100 ML OF 0.9% SODIUM CHLORIDE INJECTION)
     Route: 041
     Dates: start: 20221202, end: 20221202
  2. CYCLOPHOSPHAMIDE [Suspect]
     Active Substance: CYCLOPHOSPHAMIDE
     Indication: Chemotherapy
  3. CYCLOPHOSPHAMIDE [Suspect]
     Active Substance: CYCLOPHOSPHAMIDE
     Indication: Breast cancer female
  4. SODIUM CHLORIDE [Suspect]
     Active Substance: SODIUM CHLORIDE
     Indication: Medication dilution
     Dosage: 100 ML, QD (USED TO DILUTE 0.8 G OF CYCLOPHOSPHAMIDE)
     Route: 041
     Dates: start: 20221202, end: 20221202
  5. SODIUM CHLORIDE [Suspect]
     Active Substance: SODIUM CHLORIDE
     Dosage: 250 ML, QD (USED TO DILUTE 100 MG OF DOCETAXEL)
     Route: 042
     Dates: start: 20221202, end: 20221202
  6. SODIUM CHLORIDE [Suspect]
     Active Substance: SODIUM CHLORIDE
     Dosage: 250 ML, QD (USED TO DILUTE 392 MG OF TRASTUZUMAB)
     Route: 041
     Dates: start: 20221203, end: 20221203
  7. DOCETAXEL [Suspect]
     Active Substance: DOCETAXEL
     Indication: Neoplasm
     Dosage: 100 MG, QD (DILUTED WITH 250 ML OF 0.9% SODIUM CHLORIDE INJECTION)
     Route: 042
     Dates: start: 20221202, end: 20221202
  8. DOCETAXEL [Suspect]
     Active Substance: DOCETAXEL
     Indication: Chemotherapy
  9. DOCETAXEL [Suspect]
     Active Substance: DOCETAXEL
     Indication: Breast cancer female
  10. TRASTUZUMAB [Suspect]
     Active Substance: TRASTUZUMAB
     Indication: Targeted cancer therapy
     Dosage: 392 MG, QD (DILUTED WITH 250 ML OF 0.9% SODIUM CHLORIDE INJECTION)
     Route: 041
     Dates: start: 20221203, end: 20221203
  11. TRASTUZUMAB [Suspect]
     Active Substance: TRASTUZUMAB
     Indication: Breast cancer female

REACTIONS (1)
  - White blood cell count decreased [Recovering/Resolving]

NARRATIVE: CASE EVENT DATE: 20221205
